FAERS Safety Report 5713262-5 (Version None)
Quarter: 2008Q2

REPORT INFORMATION
  Report Type: 
  Country: None (occurrence: None)
  Receive Date: 20080422
  Receipt Date: 20080411
  Transmission Date: 20081010
  Serious: Yes (Hospitalization, Other)
  Sender: FDA-Public Use
  Company Number: FR-PFIZER INC-2008032704

PATIENT
  Age: 68 Year
  Sex: Male

DRUGS (4)
  1. ATORVASTATIN CALCIUM [Suspect]
  2. ACE INHIBITOR NOS [Concomitant]
  3. CORDARONE [Concomitant]
  4. BETA BLOCKING AGENTS [Concomitant]

REACTIONS (4)
  - EJECTION FRACTION ABNORMAL [None]
  - HEPATITIS FULMINANT [None]
  - NERVOUS SYSTEM DISORDER [None]
  - THROMBOCYTOPENIA [None]
